FAERS Safety Report 20361627 (Version 1)
Quarter: 2022Q1

REPORT INFORMATION
  Report Type: Other
  Country: CA (occurrence: CA)
  Receive Date: 20220121
  Receipt Date: 20220121
  Transmission Date: 20220423
  Serious: Yes (Death, Other)
  Sender: FDA-Public Use
  Company Number: CA-PFIZER INC-202200063832

PATIENT

DRUGS (8)
  1. FLUCONAZOLE [Suspect]
     Active Substance: FLUCONAZOLE
     Indication: Bacillus infection
     Dosage: UNK
  2. LINEZOLID [Suspect]
     Active Substance: LINEZOLID
     Indication: Bacillus infection
     Dosage: UNK
  3. VANCOMYCIN HYDROCHLORIDE [Suspect]
     Active Substance: VANCOMYCIN HYDROCHLORIDE
     Indication: Bacillus infection
     Dosage: UNK
  4. AMPHOTERICIN B [Suspect]
     Active Substance: AMPHOTERICIN B
     Indication: Bacillus infection
     Dosage: UNK
     Route: 065
  5. AMPICILLIN [Suspect]
     Active Substance: AMPICILLIN
     Indication: Prophylaxis
     Dosage: UNK
     Route: 042
  6. PIPERACILLIN AND TAZOBACTAM [Suspect]
     Active Substance: PIPERACILLIN SODIUM\TAZOBACTAM SODIUM
     Indication: Bacillus infection
     Dosage: UNK
  7. TOBRAMYCIN [Suspect]
     Active Substance: TOBRAMYCIN
     Indication: Bacillus infection
     Dosage: UNK
     Route: 065
  8. SULFAMETHOXAZOLE\TRIMETHOPRIM [Suspect]
     Active Substance: SULFAMETHOXAZOLE\TRIMETHOPRIM
     Dosage: UNK

REACTIONS (2)
  - Off label use [Fatal]
  - Drug ineffective for unapproved indication [Fatal]
